FAERS Safety Report 22032672 (Version 2)
Quarter: 2023Q2

REPORT INFORMATION
  Report Type: Report from Study
  Country: US (occurrence: US)
  Receive Date: 20230224
  Receipt Date: 20230508
  Transmission Date: 20230721
  Serious: Yes (Hospitalization)
  Sender: FDA-Public Use
  Company Number: US-ABBVIE-22K-163-4374997-00

PATIENT
  Age: 67 Year
  Sex: Female
  Weight: 170 kg

DRUGS (4)
  1. RINVOQ [Suspect]
     Active Substance: UPADACITINIB
     Indication: Rheumatoid arthritis
     Dosage: FIRST ADMIN DATE: 04 APR 2021
     Route: 048
  2. PFIZER-BIONTECH COVID-19 VACCINE [Concomitant]
     Active Substance: TOZINAMERAN
     Indication: COVID-19 immunisation
     Route: 030
     Dates: start: 20210730, end: 20210730
  3. PFIZER-BIONTECH COVID-19 VACCINE [Concomitant]
     Active Substance: TOZINAMERAN
     Indication: COVID-19 immunisation
     Dosage: SECOND DOSE
     Route: 030
     Dates: start: 20210912, end: 20210912
  4. PFIZER-BIONTECH COVID-19 VACCINE [Concomitant]
     Active Substance: TOZINAMERAN
     Indication: COVID-19 immunisation
     Dosage: BOOSTER DOSE
     Route: 030
     Dates: start: 20230223, end: 20230223

REACTIONS (12)
  - COVID-19 [Not Recovered/Not Resolved]
  - Fall [Unknown]
  - Post-acute COVID-19 syndrome [Not Recovered/Not Resolved]
  - Back pain [Not Recovered/Not Resolved]
  - Illness [Recovering/Resolving]
  - COVID-19 [Recovered/Resolved]
  - Chest pain [Not Recovered/Not Resolved]
  - Wrist fracture [Unknown]
  - Gastrointestinal disorder [Unknown]
  - Disturbance in attention [Unknown]
  - Upper limb fracture [Recovering/Resolving]
  - Dyslexia [Unknown]

NARRATIVE: CASE EVENT DATE: 20210401
